FAERS Safety Report 4852955-9 (Version None)
Quarter: 2005Q4

REPORT INFORMATION
  Report Type: 
  Country: None (occurrence: None)
  Receive Date: 20051212
  Receipt Date: 20051129
  Transmission Date: 20060501
  Serious: Yes (Other)
  Sender: FDA-Public Use
  Company Number: USA0509107450

PATIENT
  Age: 13 Year
  Sex: Female

DRUGS (2)
  1. STRATTERA [Suspect]
     Indication: ATTENTION DEFICIT/HYPERACTIVITY DISORDER
     Dosage: 40 MG
     Dates: start: 20050509
  2. EXCEDRIN (MIGRAINE) [Concomitant]

REACTIONS (11)
  - AGITATION [None]
  - BLOOD MAGNESIUM INCREASED [None]
  - BLOOD PHOSPHORUS DECREASED [None]
  - CONFUSIONAL STATE [None]
  - CONVULSION [None]
  - GRAND MAL CONVULSION [None]
  - HEADACHE [None]
  - HEART RATE INCREASED [None]
  - HYPOTENSION [None]
  - LOSS OF CONSCIOUSNESS [None]
  - POSTICTAL STATE [None]
